FAERS Safety Report 6714439-2 (Version None)
Quarter: 2010Q2

REPORT INFORMATION
  Report Type: 
  Country: None (occurrence: None)
  Receive Date: 20100506
  Receipt Date: 20100423
  Transmission Date: 20101027
  Serious: Yes (Other)
  Sender: FDA-Public Use
  Company Number: GB-WATSON-2010-06133

PATIENT
  Age: 72 Year
  Sex: Female
  Weight: 96.4 kg

DRUGS (8)
  1. SIMVASTATIN (WATSON LABORATORIES) [Suspect]
     Indication: DRUG USE FOR UNKNOWN INDICATION
     Dosage: UNK
     Route: 048
  2. ATORVASTATIN [Suspect]
     Indication: DRUG USE FOR UNKNOWN INDICATION
     Dosage: UNK
     Route: 065
     Dates: end: 20040201
  3. PIOGLITAZONE [Suspect]
     Indication: TYPE 2 DIABETES MELLITUS
     Dosage: 30 MG, UNK
     Route: 065
     Dates: start: 20070201, end: 20070501
  4. ROSIGLITAZONE [Suspect]
     Indication: TYPE 2 DIABETES MELLITUS
     Dosage: 4 MG INCREASED TO 8 MG, UNK
     Route: 065
     Dates: start: 20050301, end: 20050601
  5. ROSIGLITAZONE [Suspect]
     Dosage: UNK
     Route: 065
     Dates: start: 20050601, end: 20060901
  6. SUPRALIP [Suspect]
     Indication: DRUG USE FOR UNKNOWN INDICATION
     Dosage: 160 MG, UNK
     Route: 065
     Dates: start: 20030501, end: 20060901
  7. SUPRALIP [Suspect]
     Dosage: UNK
     Route: 065
     Dates: start: 20060901
  8. ROSUVASTATIN [Suspect]
     Indication: DRUG USE FOR UNKNOWN INDICATION
     Dosage: 10 MG, UNK

REACTIONS (3)
  - HIGH DENSITY LIPOPROTEIN DECREASED [None]
  - MYALGIA [None]
  - PARADOXICAL DRUG REACTION [None]
